FAERS Safety Report 14615202 (Version 8)
Quarter: 2019Q3

REPORT INFORMATION
  Report Type: Report from Study
  Country: US (occurrence: US)
  Receive Date: 20180308
  Receipt Date: 20190923
  Transmission Date: 20191004
  Serious: Yes (Hospitalization)
  Sender: FDA-Public Use
  Company Number: US-ACTELION-A-US2017-161626

PATIENT
  Sex: Male
  Weight: 70.3 kg

DRUGS (4)
  1. COUMADIN [Concomitant]
     Active Substance: WARFARIN SODIUM
  2. ADCIRCA [Concomitant]
     Active Substance: TADALAFIL
  3. TRACLEER [Suspect]
     Active Substance: BOSENTAN
     Indication: PULMONARY ARTERIAL HYPERTENSION
     Dosage: 125 MG, BID
     Route: 048
  4. WARFARIN [Concomitant]
     Active Substance: WARFARIN

REACTIONS (20)
  - Respiratory distress [Unknown]
  - Productive cough [Unknown]
  - Oxygen saturation decreased [Unknown]
  - Pharyngeal swelling [Unknown]
  - Pain in extremity [Unknown]
  - Loss of personal independence in daily activities [Unknown]
  - Blood alkaline phosphatase increased [Unknown]
  - Liver function test increased [Unknown]
  - Cough [Unknown]
  - International normalised ratio increased [Unknown]
  - Dizziness [Unknown]
  - Gout [Unknown]
  - Oropharyngeal pain [Unknown]
  - Nasal congestion [Unknown]
  - Chest discomfort [Unknown]
  - Fluid retention [Unknown]
  - Fatigue [Unknown]
  - Aspartate aminotransferase increased [Unknown]
  - Pneumonia [Unknown]
  - Chest pain [Unknown]
